FAERS Safety Report 7223147-3 (Version None)
Quarter: 2011Q1

REPORT INFORMATION
  Report Type: 
  Country: None (occurrence: None)
  Receive Date: 20110112
  Receipt Date: 20100127
  Transmission Date: 20110831
  Serious: No
  Sender: FDA-Public Use
  Company Number: US-ALLERGAN-1001077US

PATIENT
  Sex: Female

DRUGS (3)
  1. LISINOPRIL [Concomitant]
     Indication: HYPERTENSION
  2. RESTASIS [Suspect]
     Indication: DRY EYE
     Dosage: UNK
     Route: 047
  3. VITAMIN TAB [Concomitant]

REACTIONS (3)
  - DRY EYE [None]
  - THERAPEUTIC RESPONSE DECREASED [None]
  - OCULAR HYPERAEMIA [None]
